FAERS Safety Report 15590469 (Version 1)
Quarter: 2018Q4

REPORT INFORMATION
  Report Type: Report from Study
  Country: ES (occurrence: ES)
  Receive Date: 20181106
  Receipt Date: 20181106
  Transmission Date: 20190205
  Serious: Yes (Hospitalization)
  Sender: FDA-Public Use
  Company Number: ES-ACCORD-091191

PATIENT
  Age: 43 Year
  Sex: Male

DRUGS (1)
  1. QUETIAPINE. [Suspect]
     Active Substance: QUETIAPINE
     Indication: GENERALISED ANXIETY DISORDER
     Dosage: (1136A)
     Dates: start: 201606

REACTIONS (7)
  - Decreased appetite [Recovering/Resolving]
  - Palpitations [Recovering/Resolving]
  - Apathy [Recovering/Resolving]
  - Fatigue [Recovering/Resolving]
  - Limb discomfort [Recovering/Resolving]
  - Tachycardia [Recovering/Resolving]
  - Dizziness [Recovering/Resolving]

NARRATIVE: CASE EVENT DATE: 201606
